FAERS Safety Report 9165380 (Version 7)
Quarter: 2013Q4

REPORT INFORMATION
  Report Type: Spontaneous
  Country: FR (occurrence: FR)
  Receive Date: 20130315
  Receipt Date: 20131223
  Transmission Date: 20140711
  Serious: Yes (Hospitalization)
  Sender: FDA-Public Use
  Company Number: FR-BRISTOL-MYERS SQUIBB COMPANY-17452061

PATIENT
  Age: 59 Year
  Sex: Male
  Weight: 53 kg

DRUGS (6)
  1. REYATAZ CAPS 200 MG [Suspect]
     Indication: HIV INFECTION
     Route: 048
     Dates: start: 20090207
  2. RAMIPRIL [Suspect]
     Indication: HYPERTENSION
     Route: 048
     Dates: start: 20121027, end: 20130209
  3. BACTRIM [Suspect]
     Dosage: PREVIOUSLY TREATED FROM 01-APR-1994 TO 07-SEP-2002
     Route: 048
     Dates: start: 20110108
  4. TRUVADA [Suspect]
     Indication: HIV INFECTION
     Dosage: 1 DF = 200MG/245MG
     Route: 048
     Dates: start: 20090207
  5. NORVIR [Suspect]
     Dates: start: 20030118
  6. LOCERYL [Concomitant]
     Dates: start: 2003

REACTIONS (4)
  - Renal failure acute [Recovered/Resolved]
  - Nephrolithiasis [Recovered/Resolved]
  - Tubulointerstitial nephritis [Recovering/Resolving]
  - Renal tubular necrosis [Recovering/Resolving]
